FAERS Safety Report 13724728 (Version 1)
Quarter: 2017Q3

REPORT INFORMATION
  Report Type: Spontaneous
  Country: FR (occurrence: FR)
  Receive Date: 20170706
  Receipt Date: 20170706
  Transmission Date: 20171127
  Serious: Yes (Death, Hospitalization)
  Sender: FDA-Public Use
  Company Number: FR-ASTRAZENECA-2017SE68627

PATIENT
  Age: 23768 Day
  Sex: Male

DRUGS (12)
  1. NOVOMIX [Concomitant]
     Active Substance: INSULIN ASPART
     Dosage: 30-0-30
  2. METFORMINE [Concomitant]
     Active Substance: METFORMIN HYDROCHLORIDE
  3. AMLOR [Suspect]
     Active Substance: AMLODIPINE BESYLATE
     Indication: HYPERTENSION
     Route: 048
     Dates: end: 20170516
  4. TOMUDEX [Suspect]
     Active Substance: RALTITREXED
     Indication: COLON CANCER
     Route: 042
     Dates: start: 20170504, end: 20170504
  5. SPIRONOLACTONE. [Suspect]
     Active Substance: SPIRONOLACTONE
     Indication: HYPERTENSION
     Route: 048
     Dates: end: 20170516
  6. OXALIPLATIN. [Suspect]
     Active Substance: OXALIPLATIN
     Indication: COLON CANCER
     Route: 042
     Dates: start: 20170504, end: 20170504
  7. PANTOPRAZOLE [Concomitant]
     Active Substance: PANTOPRAZOLE
  8. ALLOPURINOL. [Concomitant]
     Active Substance: ALLOPURINOL
  9. CANDESARTAN CILEXETIL. [Suspect]
     Active Substance: CANDESARTAN CILEXETIL
     Indication: HYPERTENSION
     Route: 048
     Dates: end: 20170516
  10. BISOPROLOL FUMARATE. [Suspect]
     Active Substance: BISOPROLOL FUMARATE
     Indication: HYPERTENSION
     Route: 048
     Dates: end: 20170516
  11. ELIQUIS [Concomitant]
     Active Substance: APIXABAN
     Dosage: 1-0-1
  12. TAHOR [Concomitant]
     Active Substance: ATORVASTATIN CALCIUM
     Dosage: 0-0-1

REACTIONS (4)
  - Acute kidney injury [Fatal]
  - Diarrhoea [Fatal]
  - Hypovolaemic shock [Fatal]
  - Colitis [Fatal]

NARRATIVE: CASE EVENT DATE: 20170504
